FAERS Safety Report 7126730-9 (Version None)
Quarter: 2010Q4

REPORT INFORMATION
  Report Type: 
  Country: None (occurrence: None)
  Receive Date: 20101129
  Receipt Date: 20101118
  Transmission Date: 20110411
  Serious: Yes (Other)
  Sender: FDA-Public Use
  Company Number: US-PFIZER INC-2010132237

PATIENT
  Sex: Female
  Weight: 75 kg

DRUGS (1)
  1. XALATAN [Suspect]
     Indication: GLAUCOMA
     Dosage: ONE DROP, EACH EYE,1X/DAY, AT NIGHT
     Route: 047

REACTIONS (3)
  - BLOOD POTASSIUM DECREASED [None]
  - GASTRIC DISORDER [None]
  - HIATUS HERNIA [None]
